FAERS Safety Report 10530140 (Version 1)
Quarter: 2014Q4

REPORT INFORMATION
  Report Type: Spontaneous
  Country: US (occurrence: US)
  Receive Date: 20141021
  Receipt Date: 20141021
  Transmission Date: 20150528
  Serious: No
  Sender: FDA-Public Use
  Company Number: US-PFIZER INC-2014285381

PATIENT
  Age: 66 Year
  Sex: Female
  Weight: 117.91 kg

DRUGS (3)
  1. XANAX [Concomitant]
     Active Substance: ALPRAZOLAM
     Dosage: UNK
  2. LYRICA [Suspect]
     Active Substance: PREGABALIN
     Indication: TRIGEMINAL NEURALGIA
     Dosage: 200 MG, 3X/DAY
  3. BACLOFEN. [Concomitant]
     Active Substance: BACLOFEN
     Dosage: UNK

REACTIONS (7)
  - Vision blurred [Unknown]
  - Facial pain [Unknown]
  - Malaise [Unknown]
  - Disturbance in attention [Unknown]
  - Pain [Unknown]
  - Peripheral swelling [Unknown]
  - Pyrexia [Unknown]
